FAERS Safety Report 21898320 (Version 1)
Quarter: 2023Q1

REPORT INFORMATION
  Report Type: Spontaneous
  Country: US (occurrence: US)
  Receive Date: 20230123
  Receipt Date: 20230123
  Transmission Date: 20230417
  Serious: No
  Sender: FDA-Public Use
  Company Number: US-009507513-2212USA011363

PATIENT
  Age: 23 Year
  Sex: Male

DRUGS (6)
  1. INVANZ [Suspect]
     Active Substance: ERTAPENEM SODIUM
     Indication: Helicobacter infection
     Dosage: UNK
     Route: 042
     Dates: start: 2015
  2. INVANZ [Suspect]
     Active Substance: ERTAPENEM SODIUM
     Indication: Cellulitis
  3. VANCOMYCIN [Concomitant]
     Active Substance: VANCOMYCIN
     Indication: Helicobacter infection
     Dosage: UNK
     Route: 042
     Dates: start: 2015
  4. VANCOMYCIN [Concomitant]
     Active Substance: VANCOMYCIN
     Indication: Cellulitis
  5. AMIKACIN [Concomitant]
     Active Substance: AMIKACIN
     Indication: Helicobacter infection
     Dosage: UNK
  6. AMIKACIN [Concomitant]
     Active Substance: AMIKACIN
     Indication: Cellulitis

REACTIONS (2)
  - Product use in unapproved indication [Unknown]
  - Product use in unapproved indication [Unknown]

NARRATIVE: CASE EVENT DATE: 20150101
